FAERS Safety Report 17065320 (Version 2)
Quarter: 2019Q4

REPORT INFORMATION
  Report Type: Spontaneous
  Country: JP (occurrence: JP)
  Receive Date: 20191122
  Receipt Date: 20191203
  Transmission Date: 20200122
  Serious: No
  Sender: FDA-Public Use
  Company Number: JP-SEATTLE GENETICS-2019SGN01969

PATIENT
  Age: 75 Year
  Sex: Male
  Weight: 60.2 kg

DRUGS (5)
  1. VINBLASTINE SULFATE. [Suspect]
     Active Substance: VINBLASTINE SULFATE
     Indication: HODGKIN^S DISEASE MIXED CELLULARITY STAGE UNSPECIFIED
     Dosage: 10 MILLIGRAM, Q2WEEKS
     Route: 041
     Dates: start: 20190425, end: 20190517
  2. PEGFILGRASTIM [Concomitant]
     Active Substance: PEGFILGRASTIM
     Dosage: UNK
     Route: 065
  3. ADCETRIS [Suspect]
     Active Substance: BRENTUXIMAB VEDOTIN
     Indication: HODGKIN^S DISEASE MIXED CELLULARITY STAGE UNSPECIFIED
     Dosage: 72 MILLIGRAM, Q2WEEKS
     Route: 041
     Dates: start: 20190425, end: 20190517
  4. DOXORUBICIN HYDROCHLORIDE. [Suspect]
     Active Substance: DOXORUBICIN HYDROCHLORIDE
     Indication: HODGKIN^S DISEASE MIXED CELLULARITY STAGE UNSPECIFIED
     Dosage: 41 MILLIGRAM, Q2WEEKS
     Route: 041
     Dates: start: 20190425, end: 20190517
  5. DACARBAZINE. [Suspect]
     Active Substance: DACARBAZINE
     Indication: HODGKIN^S DISEASE MIXED CELLULARITY STAGE UNSPECIFIED
     Dosage: 626 MILLIGRAM, Q2WEEKS
     Route: 041
     Dates: start: 20190425, end: 20190517

REACTIONS (3)
  - Transient ischaemic attack [Recovered/Resolved]
  - Enterocolitis haemorrhagic [Recovering/Resolving]
  - Febrile neutropenia [Recovered/Resolved]

NARRATIVE: CASE EVENT DATE: 20190429
